FAERS Safety Report 10221944 (Version 2)
Quarter: 2014Q2

REPORT INFORMATION
  Report Type: Spontaneous
  Country: TR (occurrence: TR)
  Receive Date: 20140606
  Receipt Date: 20140606
  Transmission Date: 20141212
  Serious: Yes (Life-Threatening)
  Sender: FDA-Public Use
  Company Number: TR-BIOMARINAP-TR-2013-102091

PATIENT
  Age: 8 Year
  Sex: Male
  Weight: 16 kg

DRUGS (1)
  1. NAGLAZYME [Suspect]
     Indication: MUCOPOLYSACCHARIDOSIS VI
     Dosage: 1 MG/KG, QW
     Route: 041
     Dates: start: 20091027

REACTIONS (2)
  - Angioedema [Unknown]
  - Urticaria [Unknown]
